FAERS Safety Report 16052789 (Version 1)
Quarter: 2019Q1

REPORT INFORMATION
  Report Type: Report from Study
  Country: US (occurrence: US)
  Receive Date: 20190308
  Receipt Date: 20190308
  Transmission Date: 20190418
  Serious: Yes (Other)
  Sender: FDA-Public Use
  Company Number: US-BAYER-2019-044958

PATIENT
  Sex: Female
  Weight: 66.67 kg

DRUGS (4)
  1. UPTRAVI [Concomitant]
     Active Substance: SELEXIPAG
  2. ADEMPAS [Suspect]
     Active Substance: RIOCIGUAT
     Indication: PULMONARY ARTERIAL HYPERTENSION
     Dosage: 2.0 MG, TID
     Route: 048
  3. ADEMPAS [Suspect]
     Active Substance: RIOCIGUAT
     Indication: PULMONARY ARTERIAL HYPERTENSION
     Dosage: UNK
     Route: 048
     Dates: start: 20180524
  4. WARFARIN [Concomitant]
     Active Substance: WARFARIN
     Dosage: UNK

REACTIONS (7)
  - Anaemia [None]
  - Diarrhoea [Recovering/Resolving]
  - Dyspnoea exertional [None]
  - Arrhythmia [Unknown]
  - Blood pressure decreased [Unknown]
  - Oxygen saturation decreased [None]
  - Dizziness [Unknown]
